FAERS Safety Report 21133700 (Version 1)
Quarter: 2022Q3

REPORT INFORMATION
  Report Type: Report from Study
  Country: AR (occurrence: AR)
  Receive Date: 20220726
  Receipt Date: 20220726
  Transmission Date: 20221027
  Serious: Yes (Other)
  Sender: FDA-Public Use
  Company Number: AR-NOVARTISPH-NVSC2022AR152527

PATIENT
  Age: 54 Year
  Sex: Female

DRUGS (3)
  1. KISQALI [Suspect]
     Active Substance: RIBOCICLIB
     Indication: Breast cancer metastatic
     Dosage: 600 MG, QD
     Route: 048
     Dates: start: 20211109, end: 202201
  2. KISQALI [Suspect]
     Active Substance: RIBOCICLIB
     Dosage: 400 MG, QD
     Route: 065
     Dates: start: 202205, end: 202206
  3. LETROZOLE [Suspect]
     Active Substance: LETROZOLE
     Indication: Product used for unknown indication
     Dosage: UNK
     Route: 065
     Dates: start: 20211109, end: 202206

REACTIONS (11)
  - Hepatitis [Unknown]
  - Hepatotoxicity [Unknown]
  - Hepatic enzyme increased [Not Recovered/Not Resolved]
  - Tremor [Unknown]
  - Asthenia [Unknown]
  - Blood bilirubin increased [Unknown]
  - Ocular icterus [Unknown]
  - Pain [Unknown]
  - Muscle spasms [Unknown]
  - Bone pain [Unknown]
  - Chromaturia [Unknown]

NARRATIVE: CASE EVENT DATE: 20220101
